FAERS Safety Report 9343328 (Version 1)
Quarter: 2013Q2

REPORT INFORMATION
  Report Type: Spontaneous
  Country: US (occurrence: US)
  Receive Date: 20130612
  Receipt Date: 20130612
  Transmission Date: 20140414
  Serious: No
  Sender: FDA-Public Use
  Company Number: US-ASTRAZENECA-2013SE40523

PATIENT
  Age: 62 Year
  Sex: Male
  Weight: 79.4 kg

DRUGS (11)
  1. SYMBICORT [Suspect]
     Indication: CHRONIC OBSTRUCTIVE PULMONARY DISEASE
     Dosage: 160 MCG 1 PUFF BID
     Route: 055
     Dates: start: 20130525
  2. SYMBICORT [Suspect]
     Indication: CHRONIC OBSTRUCTIVE PULMONARY DISEASE
     Dosage: 160 MCG 2 PUFFS BID
     Route: 055
     Dates: start: 20130603
  3. SPIRIVA [Concomitant]
     Indication: CHRONIC OBSTRUCTIVE PULMONARY DISEASE
     Route: 055
     Dates: start: 2009
  4. THEOPHYLLINE [Concomitant]
     Indication: CHRONIC OBSTRUCTIVE PULMONARY DISEASE
     Dates: start: 2010
  5. XOPENEX [Concomitant]
     Indication: INHALATION THERAPY
     Dosage: PRN, IN MORNING
     Route: 055
  6. XOPENEX [Concomitant]
     Indication: INHALATION THERAPY
     Dosage: PRN, IN MORNING
     Route: 055
  7. XOPENEX [Concomitant]
     Indication: INHALATION THERAPY
     Dosage: PRN, AT NIGHT
     Route: 055
  8. XOPENEX [Concomitant]
     Indication: INHALATION THERAPY
     Dosage: PRN, AT NIGHT
     Route: 055
  9. PREDNISONE Z PACK [Concomitant]
     Route: 048
  10. PREDNISONE Z PACK [Concomitant]
     Dosage: 6 TABLETS  ON THE FIRST DAY, THEN 5, 4, 3, 2, AND 1 TABLET ON SUBSEQUENT DAYS
     Route: 048
  11. ADVAIR [Concomitant]
     Dates: start: 2009

REACTIONS (6)
  - Respiratory distress [Unknown]
  - Dyspnoea [Unknown]
  - Chest discomfort [Unknown]
  - Lower respiratory tract infection [Unknown]
  - Cough [Unknown]
  - Intentional drug misuse [Unknown]
